FAERS Safety Report 7396100-7 (Version None)
Quarter: 2011Q2

REPORT INFORMATION
  Report Type: 
  Country: None (occurrence: None)
  Receive Date: 20110406
  Receipt Date: 20070523
  Transmission Date: 20111010
  Serious: Yes (Death, Disabling, Other)
  Sender: FDA-Public Use
  Company Number: US-BAYER-200711245BWH

PATIENT
  Sex: Female
  Weight: 56.689 kg

DRUGS (17)
  1. LIDOCAINE [Concomitant]
     Dosage: 300 MG, UNK
     Route: 042
     Dates: start: 20050413
  2. CALCIUM CHLORIDE [Concomitant]
     Dosage: 2 G, UNK
     Route: 042
     Dates: start: 20050413
  3. DESMOPRESSIN ACETATE [Concomitant]
     Dosage: UNK
     Route: 042
     Dates: start: 20050413
  4. PROTAMINE SULFATE [Suspect]
     Dosage: 150 MG, UNK
     Route: 042
     Dates: start: 20050413
  5. PLASMA [Concomitant]
     Dosage: 4 U, UNK
     Route: 042
     Dates: start: 20050413
  6. PLATELETS [Concomitant]
     Dosage: 2 U, UNK
     Route: 042
     Dates: start: 20050413
  7. TRASYLOL [Suspect]
     Dosage: UNK
     Route: 041
     Dates: start: 20050413, end: 20050413
  8. TRASYLOL [Suspect]
     Indication: AORTIC VALVE REPLACEMENT
     Dosage: PUMP PRIME, 4 VIALS
     Route: 042
     Dates: start: 20050413, end: 20050413
  9. RED BLOOD CELLS [Concomitant]
     Dosage: 8 U, UNK
     Route: 042
     Dates: start: 20050413
  10. SODIUM BICARBONATE [Concomitant]
     Dosage: 300 UNITS UNSPECIFIED
     Route: 042
     Dates: start: 20050413
  11. MANNITOL [Concomitant]
     Dosage: 50 UNITS UNSPECIFIED
     Route: 042
     Dates: start: 20050413
  12. INSULIN [Concomitant]
     Dosage: 30 U, UNK
     Route: 042
     Dates: start: 20050413
  13. MAGNESIUM SULFATE [Concomitant]
     Dosage: 1 G, UNK
     Route: 042
     Dates: start: 20050413
  14. CARDIZEM [Concomitant]
     Dosage: 180 MG, QD
     Route: 048
  15. EPINEPHRINE [Concomitant]
     Dosage: 20 MCG
     Route: 042
     Dates: start: 20050413
  16. ENALAPRIL [Concomitant]
     Dosage: 10 MG, QD LONG TERM
     Route: 048
  17. HEPARIN SODIUM [Concomitant]
     Dosage: 17 U, UNK
     Route: 042
     Dates: start: 20050413

REACTIONS (13)
  - INJURY [None]
  - PAIN [None]
  - ASTHENIA [None]
  - DEPRESSION [None]
  - ADVERSE EVENT [None]
  - GENERAL PHYSICAL CONDITION ABNORMAL [None]
  - ANXIETY [None]
  - MENTAL IMPAIRMENT [None]
  - RENAL FAILURE [None]
  - TENSION [None]
  - EMOTIONAL DISTRESS [None]
  - ANHEDONIA [None]
  - FEAR [None]
